FAERS Safety Report 6083819-3 (Version None)
Quarter: 2009Q1

REPORT INFORMATION
  Report Type: 
  Country: None (occurrence: None)
  Receive Date: 20090217
  Receipt Date: 20090203
  Transmission Date: 20090719
  Serious: Yes (Hospitalization)
  Sender: FDA-Public Use
  Company Number: 014221

PATIENT
  Age: 58 Year
  Sex: Female

DRUGS (3)
  1. PRIALT [Suspect]
     Indication: PAIN
     Dosage: 0.062 UG, ONCE/HOUR, INTRATHECAL
     Route: 037
     Dates: start: 20081202
  2. MORPHINE [Suspect]
     Indication: DRUG USE FOR UNKNOWN INDICATION
     Dosage: INTRATHECAL
     Route: 037
  3. DILAUDID [Concomitant]

REACTIONS (7)
  - CATHETER RELATED COMPLICATION [None]
  - FAECAL INCONTINENCE [None]
  - GRANULOMA [None]
  - INFUSION SITE MASS [None]
  - MUSCULAR WEAKNESS [None]
  - PAIN IN EXTREMITY [None]
  - URINARY INCONTINENCE [None]
